FAERS Safety Report 20616520 (Version 1)
Quarter: 2022Q1

REPORT INFORMATION
  Report Type: Spontaneous
  Country: CN (occurrence: CN)
  Receive Date: 20220321
  Receipt Date: 20220321
  Transmission Date: 20220423
  Serious: Yes (Hospitalization, Other)
  Sender: FDA-Public Use
  Company Number: CN-PFIZER INC-202200383571

PATIENT
  Age: 36 Year
  Sex: Male
  Weight: 100 kg

DRUGS (5)
  1. METHYLPREDNISOLONE [Suspect]
     Active Substance: METHYLPREDNISOLONE
     Indication: Gouty arthritis
     Dosage: 24 MG, 1X/DAY
     Route: 048
     Dates: start: 20220211, end: 20220215
  2. METHYLPREDNISOLONE SODIUM SUCCINATE [Suspect]
     Active Substance: METHYLPREDNISOLONE SODIUM SUCCINATE
     Indication: Gouty arthritis
     Dosage: 40 MG, 1X/DAY
     Route: 041
     Dates: start: 20220210, end: 20220211
  3. CODEINE PHOSPHATE\IBUPROFEN [Suspect]
     Active Substance: CODEINE PHOSPHATE\IBUPROFEN
     Indication: Gouty arthritis
     Dosage: 1 DF, 2X/DAY
     Route: 048
     Dates: start: 20220209, end: 20220215
  4. HERBALS [Suspect]
     Active Substance: HERBALS
     Indication: Gouty arthritis
     Dosage: 6 DF, 2X/DAY
     Route: 048
     Dates: start: 20220209, end: 20220215
  5. FEBUXOSTAT [Suspect]
     Active Substance: FEBUXOSTAT
     Indication: Gouty arthritis
     Dosage: 20 MG, 1X/DAY
     Route: 048
     Dates: start: 20220209, end: 20220215

REACTIONS (1)
  - Transaminases increased [Recovering/Resolving]

NARRATIVE: CASE EVENT DATE: 20220215
